FAERS Safety Report 9417646 (Version 2)
Quarter: 2013Q4

REPORT INFORMATION
  Report Type: Report from Study
  Country: US (occurrence: US)
  Receive Date: 20130724
  Receipt Date: 20131227
  Transmission Date: 20140711
  Serious: Yes (Death, Hospitalization)
  Sender: FDA-Public Use
  Company Number: US-JNJFOC-20130712463

PATIENT
  Age: 70 Year
  Sex: Male
  Weight: 68.04 kg

DRUGS (4)
  1. REMICADE [Suspect]
     Indication: RHEUMATOID ARTHRITIS
     Route: 042
  2. SINGULAIR [Concomitant]
     Route: 065
  3. OXYCONTIN [Concomitant]
     Indication: PAIN
     Route: 065
  4. XANAX [Concomitant]
     Indication: NERVOUSNESS
     Route: 065

REACTIONS (11)
  - Renal failure acute [Fatal]
  - White blood cell count abnormal [Fatal]
  - Hepatic failure [Fatal]
  - Clostridium difficile infection [Fatal]
  - Laceration [Unknown]
  - Thrombosis [Unknown]
  - Body height decreased [Not Recovered/Not Resolved]
  - Dysstasia [Unknown]
  - Sepsis [Unknown]
  - Unevaluable event [Unknown]
  - Contusion [Unknown]
